FAERS Safety Report 25185492 (Version 3)
Quarter: 2025Q4

REPORT INFORMATION
  Report Type: Spontaneous
  Country: US (occurrence: US)
  Receive Date: 20250410
  Receipt Date: 20251221
  Transmission Date: 20260118
  Serious: No
  Sender: VERTEX
  Company Number: US-VERTEX PHARMACEUTICALS-2025-005213

PATIENT
  Age: 48 Year
  Sex: Female

DRUGS (14)
  1. JOURNAVX [Suspect]
     Active Substance: SUZETRIGINE
     Indication: Pain
     Dosage: 2 TABLETS (50MG EACH), SINGLE (LOADING DOSE)
     Route: 061
     Dates: start: 20250328, end: 20250328
  2. COLESTIPOL [Concomitant]
     Active Substance: COLESTIPOL
     Dosage: 2 GRAM, QD
  3. LOSARTAN [Concomitant]
     Active Substance: LOSARTAN
     Dosage: 25 MG, QD
  4. OMEPRAZOLE [Concomitant]
     Active Substance: OMEPRAZOLE
     Dosage: 40 MG, QD
  5. LOPERAMIDE [Concomitant]
     Active Substance: LOPERAMIDE
     Dosage: 2 MG, QD (AS NEEDED)
  6. NARATRIPTAN [Concomitant]
     Active Substance: NARATRIPTAN HYDROCHLORIDE
     Dosage: 2.5 MG, QD (TAKEN APPROXIMATELY TWICE A MONTH)
  7. ACETAMINOPHEN [Concomitant]
     Active Substance: ACETAMINOPHEN
     Indication: Pain
     Dosage: 500-1000 MG, EVERY 6H
  8. IBUPROFEN [Concomitant]
     Active Substance: IBUPROFEN
     Indication: Pain
     Dosage: 800 MG, TID
  9. GABAPENTIN [Concomitant]
     Active Substance: GABAPENTIN
     Indication: Pain
     Dosage: 600 MG, TID
  10. OXYCODONE AND ACETAMINOPHEN [Concomitant]
     Active Substance: ACETAMINOPHEN\OXYCODONE HYDROCHLORIDE
     Indication: Pain
     Dosage: 5/325 MG, TID
  11. PREDNISONE [Concomitant]
     Active Substance: PREDNISONE
     Indication: Pain
     Dosage: 24 MG, QD
  12. PREDNISONE [Concomitant]
     Active Substance: PREDNISONE
     Dosage: 4 MG (TAPER OVER 6 DAYS)
  13. PREGABALIN [Concomitant]
     Active Substance: PREGABALIN
     Indication: Pain
     Dosage: 75 MG, TID (EVERY 08 HOURS)
  14. TOPIRAMATE [Concomitant]
     Active Substance: TOPIRAMATE
     Indication: Poor quality sleep
     Dosage: 25 MG, QD (AT BEDTIME)

REACTIONS (2)
  - Paraesthesia [Recovered/Resolved]
  - Skin burning sensation [Recovered/Resolved]

NARRATIVE: CASE EVENT DATE: 20250328
